FAERS Safety Report 14630871 (Version 1)
Quarter: 2018Q1

REPORT INFORMATION
  Report Type: Report from Study
  Country: AU (occurrence: AU)
  Receive Date: 20180313
  Receipt Date: 20180313
  Transmission Date: 20180509
  Serious: Yes (Other)
  Sender: FDA-Public Use
  Company Number: AU-JNJFOC-20180309358

PATIENT
  Age: 72 Year
  Sex: Female

DRUGS (1)
  1. SIMPONI [Suspect]
     Active Substance: GOLIMUMAB
     Indication: RHEUMATOID ARTHRITIS
     Route: 058
     Dates: start: 20160923

REACTIONS (4)
  - Abdominal pain upper [Unknown]
  - Dyspnoea [Unknown]
  - Neoplasm malignant [Unknown]
  - Pain in extremity [Unknown]

NARRATIVE: CASE EVENT DATE: 201803
